FAERS Safety Report 19788857 (Version 1)
Quarter: 2021Q3

REPORT INFORMATION
  Report Type: Spontaneous
  Country: IT (occurrence: IT)
  Receive Date: 20210904
  Receipt Date: 20210904
  Transmission Date: 20211014
  Serious: Yes (Death, Hospitalization, Other)
  Sender: FDA-Public Use
  Company Number: IT-AUROBINDO-AUR-APL-2021-037359

PATIENT
  Age: 83 Year
  Sex: Male
  Weight: 80 kg

DRUGS (4)
  1. TORVAST [Concomitant]
     Active Substance: ATORVASTATIN
     Indication: PRODUCT USED FOR UNKNOWN INDICATION
     Dosage: UNK
     Route: 065
  2. LEVOFLOXACIN FILMCOATED TABLET [Suspect]
     Active Substance: LEVOFLOXACIN
     Indication: DYSPNOEA
     Dosage: 500 MILLIGRAM, ONCE A DAY
     Route: 048
  3. CARDIOASPIRIN [Concomitant]
     Active Substance: ASPIRIN
     Indication: PRODUCT USED FOR UNKNOWN INDICATION
     Dosage: UNK
     Route: 065
  4. COMIRNATY [Suspect]
     Active Substance: TOZINAMERAN
     Indication: COVID-19 IMMUNISATION
     Dosage: 0.3 ML, TOTAL
     Route: 030
     Dates: start: 20210422, end: 20210422

REACTIONS (11)
  - Pulmonary embolism [Fatal]
  - Dyspnoea [Fatal]
  - Fibrin D dimer increased [Fatal]
  - Disorientation [Fatal]
  - Urine output decreased [Fatal]
  - Blood lactate dehydrogenase increased [Fatal]
  - Acute abdomen [Fatal]
  - Unresponsive to stimuli [Fatal]
  - Myocardial necrosis [Fatal]
  - Sopor [Fatal]
  - Pyrexia [Fatal]

NARRATIVE: CASE EVENT DATE: 20210720
